FAERS Safety Report 25113566 (Version 1)
Quarter: 2025Q1

REPORT INFORMATION
  Report Type: Spontaneous
  Country: US (occurrence: US)
  Receive Date: 20250324
  Receipt Date: 20250324
  Transmission Date: 20250409
  Serious: Yes (Other)
  Sender: BIOVITRUM
  Company Number: US-BIOVITRUM-2025-US-003988

PATIENT
  Age: 75 Year
  Sex: Male

DRUGS (1)
  1. VONJO [Suspect]
     Active Substance: PACRITINIB
     Indication: Myeloproliferative neoplasm
     Route: 048
     Dates: start: 20250225

REACTIONS (12)
  - Platelet count decreased [Unknown]
  - Splenomegaly [Unknown]
  - Lymphoma [Unknown]
  - Diarrhoea [Unknown]
  - Constipation [Unknown]
  - Spinal pain [Unknown]
  - Abdominal pain [Unknown]
  - Neck pain [Unknown]
  - Body temperature increased [Unknown]
  - Red blood cell count increased [Unknown]
  - Arthralgia [Unknown]
  - Intentional product misuse [Not Recovered/Not Resolved]

NARRATIVE: CASE EVENT DATE: 20250225
